FAERS Safety Report 8135534-X (Version None)
Quarter: 2012Q1

REPORT INFORMATION
  Report Type: 
  Country: None (occurrence: None)
  Receive Date: 20120214
  Receipt Date: 20120203
  Transmission Date: 20120608
  Serious: Yes (Other)
  Sender: FDA-Public Use
  Company Number: JP-AMGEN-JPNCT2012006512

PATIENT
  Age: 66 Year
  Sex: Male

DRUGS (4)
  1. TEMOZOLOMIDE [Concomitant]
     Indication: COLORECTAL CANCER
     Route: 041
     Dates: start: 20111001
  2. FLUOROURACIL [Concomitant]
     Indication: COLORECTAL CANCER
     Route: 041
     Dates: start: 20111001
  3. PANITUMUMAB [Suspect]
     Indication: LARGE INTESTINE CARCINOMA
     Dosage: UNK UNK, Q2WK
     Route: 041
     Dates: start: 20111001
  4. LEVOLEUCOVORIN CALCIUM [Concomitant]
     Indication: COLORECTAL CANCER
     Route: 041
     Dates: start: 20111001

REACTIONS (1)
  - INTERSTITIAL LUNG DISEASE [None]
